FAERS Safety Report 21572135 (Version 3)
Quarter: 2022Q4

REPORT INFORMATION
  Report Type: Report from Study
  Country: IN (occurrence: IN)
  Receive Date: 20221109
  Receipt Date: 20221122
  Transmission Date: 20230113
  Serious: Yes (Hospitalization)
  Sender: FDA-Public Use
  Company Number: IN-GLAXOSMITHKLINE-IN2022152335

PATIENT

DRUGS (14)
  1. BELANTAMAB MAFODOTIN [Suspect]
     Active Substance: BELANTAMAB MAFODOTIN
     Indication: Plasma cell myeloma
     Dosage: 101.46 MG/KG, QD
     Route: 042
     Dates: start: 20221012
  2. ZOLPIDEM [Concomitant]
     Active Substance: ZOLPIDEM TARTRATE
     Indication: Insomnia
     Dosage: 5 MG, SINGLE
     Route: 048
     Dates: start: 2020
  3. CALCIUM CARBONATE\CHOLECALCIFEROL [Concomitant]
     Active Substance: CALCIUM CARBONATE\CHOLECALCIFEROL
     Indication: Calcium deficiency
     Dosage: 500 MG, SINGLE
     Route: 048
     Dates: start: 2020, end: 20221028
  4. ACYCLOVIR [Concomitant]
     Active Substance: ACYCLOVIR
     Indication: Antiviral treatment
     Dosage: 200 MG, TID
     Route: 048
     Dates: start: 2020, end: 20221028
  5. DOLO [Concomitant]
     Indication: Pyrexia
     Dosage: 650 MG, TID
     Route: 048
     Dates: start: 2020
  6. DOLO [Concomitant]
     Indication: Pain
  7. TRAMADOL [Concomitant]
     Active Substance: TRAMADOL
     Indication: Analgesic therapy
     Dosage: 50 MG, TID
     Route: 048
     Dates: start: 2020
  8. PIPERACILLIN AND TAZOBACTAM [Concomitant]
     Active Substance: PIPERACILLIN SODIUM\TAZOBACTAM SODIUM
     Indication: Bacterial infection
     Dosage: 4.5GM IV 100 IU/ML Q8H, FREQUENCY = EVERY 8 HOURS
     Route: 042
     Dates: start: 20221021, end: 20221028
  9. METRONIDAZOLE [Concomitant]
     Active Substance: METRONIDAZOLE
     Indication: Infection
     Dosage: 400 MG, Q8H
     Route: 042
     Dates: start: 20221021, end: 20221028
  10. ONDANSETRON HYDROCHLORIDE [Concomitant]
     Active Substance: ONDANSETRON HYDROCHLORIDE
     Indication: Vomiting
     Dosage: 8 MG , Q8H
     Route: 042
     Dates: start: 20221021, end: 20221028
  11. RANITIDINE HYDROCHLORIDE [Concomitant]
     Active Substance: RANITIDINE HYDROCHLORIDE
     Indication: Gastritis
     Dosage: 50 MG, Q12H
     Route: 042
     Dates: start: 20221021, end: 20221028
  12. OSELTAMIVIR [Concomitant]
     Active Substance: OSELTAMIVIR
     Indication: Viral infection
     Dosage: 75 MG, BID
     Route: 042
     Dates: start: 20221022, end: 20221023
  13. DUOLIN [Concomitant]
     Indication: Prophylaxis
     Dosage: 1.25 MG, TID
     Route: 042
     Dates: start: 20221023, end: 20221025
  14. BUDESONIDE [Concomitant]
     Active Substance: BUDESONIDE
     Indication: Prophylaxis
     Dosage: 0.5 MG, BID
     Route: 042
     Dates: start: 20221023, end: 20221025

REACTIONS (1)
  - Pneumonia [Recovered/Resolved]

NARRATIVE: CASE EVENT DATE: 20221021
